FAERS Safety Report 7072106-2 (Version None)
Quarter: 2010Q4

REPORT INFORMATION
  Report Type: 
  Country: None (occurrence: None)
  Receive Date: 20101029
  Receipt Date: 20100205
  Transmission Date: 20110411
  Serious: No
  Sender: FDA-Public Use
  Company Number: A0832520A

PATIENT
  Age: 14 Year
  Sex: Male

DRUGS (4)
  1. ADVAIR DISKUS 100/50 [Suspect]
     Indication: PRODUCT USED FOR UNKNOWN INDICATION
     Route: 055
     Dates: start: 20091107
  2. PROVENTIL [Concomitant]
  3. BACTROBAN [Concomitant]
  4. VERAMYST [Concomitant]

REACTIONS (2)
  - ORAL MUCOSAL DISCOLOURATION [None]
  - PRODUCT QUALITY ISSUE [None]
